FAERS Safety Report 15394620 (Version 2)
Quarter: 2018Q4

REPORT INFORMATION
  Report Type: Spontaneous
  Country: US (occurrence: US)
  Receive Date: 20180918
  Receipt Date: 20181004
  Transmission Date: 20190204
  Serious: Yes (Other)
  Sender: FDA-Public Use
  Company Number: US-BEH-2018094875

PATIENT
  Age: 22 Year
  Sex: Male

DRUGS (2)
  1. IDELVION [Suspect]
     Active Substance: COAGULATION FACTOR IX RECOMBINANT HUMAN
     Indication: FACTOR VIII DEFICIENCY
     Dosage: 3800 IU, Q 10 DAYS AND PRN
     Route: 042
     Dates: start: 20180911
  2. IDELVION [Suspect]
     Active Substance: COAGULATION FACTOR IX RECOMBINANT HUMAN
     Indication: FACTOR IX DEFICIENCY
     Dosage: 3800 IU, Q 10 DAYS
     Route: 042
     Dates: start: 20131113

REACTIONS (1)
  - Haemarthrosis [Unknown]
